FAERS Safety Report 14074832 (Version 1)
Quarter: 2017Q4

REPORT INFORMATION
  Report Type: Spontaneous
  Country: CN (occurrence: CN)
  Receive Date: 20171010
  Receipt Date: 20171010
  Transmission Date: 20180321
  Serious: Yes (Other)
  Sender: FDA-Public Use
  Company Number: CN-MYLANLABS-2017M1063150

PATIENT
  Age: 63 Year
  Sex: Male

DRUGS (10)
  1. HYDROCORTISONE. [Suspect]
     Active Substance: HYDROCORTISONE
     Indication: ASPERGILLUS INFECTION
     Dosage: 100 MG STARTED ON DAY 6 OF HOSPITALISATION
     Route: 042
  2. VORICONAZOLE. [Interacting]
     Active Substance: VORICONAZOLE
     Indication: ASPERGILLUS INFECTION
     Dosage: STARTED ON DAY 18 OF HOSPITALISATION
     Route: 048
  3. ADZOPIP [Concomitant]
     Indication: ASPERGILLUS INFECTION
     Dosage: 4.5 G, Q8H
     Route: 042
  4. MOXIFLOXACIN. [Concomitant]
     Active Substance: MOXIFLOXACIN
     Indication: ASPERGILLUS INFECTION
     Dosage: 0.4 G, QD
     Route: 042
  5. LEVOFLOXACIN. [Concomitant]
     Active Substance: LEVOFLOXACIN
     Indication: ASPERGILLUS INFECTION
     Dosage: 0.4 G, QD
     Route: 042
  6. VORICONAZOLE. [Interacting]
     Active Substance: VORICONAZOLE
     Dosage: 100 MG, UNK
     Route: 048
  7. BIAPENEM [Concomitant]
     Active Substance: BIAPENEM
     Indication: ASPERGILLUS INFECTION
     Route: 042
  8. ANIPEN [Concomitant]
     Active Substance: CILASTATIN SODIUM\IMIPENEM
     Indication: ASPERGILLUS INFECTION
     Route: 042
  9. AMBROXOL [Concomitant]
     Active Substance: AMBROXOL
     Indication: ASPERGILLUS INFECTION
     Dosage: 60 MG, BID
     Route: 042
  10. VORICONAZOLE. [Interacting]
     Active Substance: VORICONAZOLE
     Dosage: 150 MG, UNK
     Route: 048

REACTIONS (2)
  - Hypokalaemia [Unknown]
  - Drug interaction [Unknown]
